FAERS Safety Report 8165770-8 (Version None)
Quarter: 2012Q1

REPORT INFORMATION
  Report Type: 
  Country: None (occurrence: None)
  Receive Date: 20120227
  Receipt Date: 20110207
  Transmission Date: 20120608
  Serious: No
  Sender: FDA-Public Use
  Company Number: US-MYLANLABS-2011S1001670

PATIENT
  Age: 39 Year
  Sex: Female
  Weight: 47.63 kg

DRUGS (1)
  1. AMNESTEEM [Suspect]
     Indication: CUTANEOUS AMYLOIDOSIS
     Route: 048
     Dates: start: 20100806, end: 20110101

REACTIONS (3)
  - WEIGHT INCREASED [None]
  - INCREASED APPETITE [None]
  - DEPRESSED MOOD [None]
